FAERS Safety Report 5565335-8 (Version None)
Quarter: 2007Q4

REPORT INFORMATION
  Report Type: 
  Country: None (occurrence: None)
  Receive Date: 20071218
  Receipt Date: 20031021
  Transmission Date: 20080405
  Serious: Yes (Death)
  Sender: FDA-Public Use
  Company Number: FR-ROCHE-349717

PATIENT
  Age: 66 Year
  Sex: Male

DRUGS (1)
  1. HYPNOVEL (INJ) [Suspect]
     Indication: AGITATION
     Dosage: INDICATION: ANXIETY, FORM REPORTED AS INJECTABLE-SOLUTION.
     Route: 058

REACTIONS (3)
  - AGITATION [None]
  - BLADDER CANCER [None]
  - DRUG INEFFECTIVE [None]
